FAERS Safety Report 19742695 (Version 1)
Quarter: 2021Q3

REPORT INFORMATION
  Report Type: Report from Study
  Country: AR (occurrence: AR)
  Receive Date: 20210825
  Receipt Date: 20210825
  Transmission Date: 20211014
  Serious: Yes (Hospitalization)
  Sender: FDA-Public Use
  Company Number: AR-SA-2021SA200829

PATIENT
  Age: 6 Year
  Sex: Female

DRUGS (2)
  1. LARONIDASE [Suspect]
     Active Substance: LARONIDASE
     Dosage: 4/5 VIALS, QW
     Route: 041
  2. LARONIDASE [Suspect]
     Active Substance: LARONIDASE
     Indication: MUCOPOLYSACCHARIDOSIS I
     Dosage: 4/5 VIALS, QW
     Route: 041
     Dates: end: 20210807

REACTIONS (3)
  - Respiratory disorder [Not Recovered/Not Resolved]
  - Rash [Recovered/Resolved]
  - Pyrexia [Recovered/Resolved]

NARRATIVE: CASE EVENT DATE: 20210610
